FAERS Safety Report 8079030-7 (Version None)
Quarter: 2012Q1

REPORT INFORMATION
  Report Type: 
  Country: None (occurrence: None)
  Receive Date: 20120128
  Receipt Date: 20110722
  Transmission Date: 20120608
  Serious: No
  Sender: FDA-Public Use
  Company Number: US-ABBOTT-11P-163-0836644-00

PATIENT
  Age: 61 Year
  Sex: Female

DRUGS (6)
  1. HUMIRA [Suspect]
     Indication: PSORIASIS
     Dates: start: 20110601, end: 20110713
  2. CLINDAMYCIN [Concomitant]
     Indication: PRODUCT USED FOR UNKNOWN INDICATION
     Dosage: QID
  3. TACLONEX [Concomitant]
     Indication: PSORIASIS
     Dosage: TID
     Route: 061
  4. TACLONEX [Concomitant]
  5. PREDNISONE TAB [Concomitant]
     Indication: RASH
     Dosage: 20 MG DAILY
  6. PREDNISONE TAB [Concomitant]
     Indication: PRURITUS

REACTIONS (3)
  - RASH [None]
  - CELLULITIS [None]
  - PSORIASIS [None]
